FAERS Safety Report 11263528 (Version 2)
Quarter: 2015Q3

REPORT INFORMATION
  Report Type: Spontaneous
  Country: JP (occurrence: JP)
  Receive Date: 20150713
  Receipt Date: 20150715
  Transmission Date: 20151125
  Serious: Yes (Other)
  Sender: FDA-Public Use
  Company Number: JP-ROCHE-1591089

PATIENT
  Age: 73 Year
  Sex: Male

DRUGS (5)
  1. LUCENTIS [Suspect]
     Active Substance: RANIBIZUMAB
     Indication: AGE-RELATED MACULAR DEGENERATION
     Route: 050
     Dates: start: 200911
  2. VISUDYNE [Suspect]
     Active Substance: VERTEPORFIN
     Indication: DETACHMENT OF RETINAL PIGMENT EPITHELIUM
     Route: 042
     Dates: start: 200712
  3. VISUDYNE [Suspect]
     Active Substance: VERTEPORFIN
     Indication: AGE-RELATED MACULAR DEGENERATION
     Route: 042
     Dates: start: 201202, end: 201202
  4. EYLEA [Suspect]
     Active Substance: AFLIBERCEPT
     Indication: DETACHMENT OF RETINAL PIGMENT EPITHELIUM
     Route: 050
     Dates: start: 201306
  5. LUCENTIS [Suspect]
     Active Substance: RANIBIZUMAB
     Indication: DETACHMENT OF RETINAL PIGMENT EPITHELIUM
     Route: 050
     Dates: start: 201202, end: 201202

REACTIONS (4)
  - Drug ineffective [Unknown]
  - Dry age-related macular degeneration [Unknown]
  - Visual field defect [Recovered/Resolved]
  - Detachment of retinal pigment epithelium [Recovered/Resolved]
